FAERS Safety Report 9393333 (Version 4)
Quarter: 2013Q3

REPORT INFORMATION
  Report Type: Spontaneous
  Country: JP (occurrence: JP)
  Receive Date: 20130710
  Receipt Date: 20130829
  Transmission Date: 20140515
  Serious: Yes (Hospitalization, Other)
  Sender: FDA-Public Use
  Company Number: JP-ABBOTT-13P-087-1116239-00

PATIENT
  Age: 78 Year
  Sex: Male

DRUGS (11)
  1. NORVIR [Suspect]
     Indication: HIV INFECTION
     Route: 048
     Dates: start: 20130426, end: 20130601
  2. ADOAIR [Suspect]
     Indication: CHRONIC OBSTRUCTIVE PULMONARY DISEASE
     Route: 055
     Dates: start: 201004, end: 20130725
  3. ADOAIR [Suspect]
     Route: 055
     Dates: start: 20130726
  4. DARUNAVIR ETHANOLATE [Suspect]
     Indication: HIV INFECTION
     Route: 048
     Dates: start: 20130426, end: 20130601
  5. VALGANCICLOVIR HYDROCHLORIDE [Suspect]
     Dates: start: 20130611
  6. TAMSULOSIN HYDROCHLORIDE [Concomitant]
     Indication: BENIGN PROSTATIC HYPERPLASIA
     Route: 048
     Dates: start: 201204
  7. ETIZOLAM [Concomitant]
     Indication: INSOMNIA
     Route: 048
     Dates: start: 201204
  8. PREGABALIN [Concomitant]
     Indication: HERPES ZOSTER
     Route: 048
     Dates: start: 20110621
  9. ELDECALCITOL [Concomitant]
     Indication: OSTEOPOROSIS
     Route: 048
     Dates: start: 201208
  10. RALTEGRAVIR [Concomitant]
     Indication: PRODUCT USED FOR UNKNOWN INDICATION
     Dates: start: 20130426
  11. RALTEGRAVIR POTASSIUM [Concomitant]
     Indication: HIV INFECTION
     Route: 048
     Dates: start: 20100412

REACTIONS (16)
  - CD4 lymphocytes decreased [Recovered/Resolved]
  - Cytomegalovirus mucocutaneous ulcer [Recovered/Resolved]
  - Duodenal ulcer [Recovered/Resolved]
  - Glycosylated haemoglobin increased [Recovering/Resolving]
  - Glucose tolerance impaired [Recovering/Resolving]
  - Blood triglycerides increased [Recovering/Resolving]
  - Platelet count decreased [Recovered/Resolved]
  - Oesophageal candidiasis [Unknown]
  - Decreased appetite [Recovering/Resolving]
  - Asthenia [Unknown]
  - Blood triglycerides increased [Unknown]
  - Blood cholesterol increased [Unknown]
  - Faeces discoloured [Unknown]
  - Bone marrow failure [Unknown]
  - Drug level increased [Unknown]
  - Drug interaction [Unknown]
